FAERS Safety Report 7918935-1 (Version None)
Quarter: 2011Q4

REPORT INFORMATION
  Report Type: 
  Country: None (occurrence: None)
  Receive Date: 20111116
  Receipt Date: 20111109
  Transmission Date: 20120403
  Serious: Yes (Hospitalization)
  Sender: FDA-Public Use
  Company Number: US-PFIZER INC-K201100652

PATIENT
  Age: 61 Year
  Sex: Male

DRUGS (11)
  1. PLAVIX [Suspect]
     Dosage: 75 MG, 1X/DAY
  2. ENALAPRIL MALEATE [Suspect]
     Dosage: 1 DF, 1X/DAY
  3. ALLOPURINOL [Suspect]
     Dosage: 300 MG, 1X/DAY
  4. CORGARD [Suspect]
     Indication: HYPERTENSION
     Dosage: 80 MG, 2X/DAY
     Route: 048
     Dates: start: 20110312
  5. ADANCOR [Suspect]
     Dosage: 40 MG, 1X/DAY
  6. INSULIN [Suspect]
     Dosage: UNK
  7. LASIX [Suspect]
     Indication: HYPERTENSION
     Dosage: 80 MG, 1X/DAY
     Route: 048
     Dates: start: 20110312, end: 20110324
  8. REPAGLINIDE [Suspect]
     Dosage: 3 MG, 1X/DAY
  9. MICARDIS HCT [Suspect]
     Dosage: 1 DF, 1X/DAY
  10. VITAMIN B COMPLEX TAB [Suspect]
     Dosage: UNK
  11. ATORVASTATIN CALCIUM [Suspect]
     Dosage: 20 MG, 1X/DAY

REACTIONS (7)
  - LEUKOPENIA [None]
  - INJECTION SITE HAEMORRHAGE [None]
  - RALES [None]
  - OEDEMA [None]
  - HAEMATOMA [None]
  - DYSPNOEA [None]
  - THROMBOCYTOPENIA [None]
